FAERS Safety Report 6863723-0 (Version None)
Quarter: 2010Q3

REPORT INFORMATION
  Report Type: 
  Country: None (occurrence: None)
  Receive Date: 20100721
  Receipt Date: 20080310
  Transmission Date: 20110219
  Serious: No
  Sender: FDA-Public Use
  Company Number: US-PFIZER INC-2008022878

PATIENT
  Sex: Male
  Weight: 61.818 kg

DRUGS (8)
  1. CHANTIX [Suspect]
     Indication: SMOKING CESSATION THERAPY
     Route: 048
     Dates: start: 20080307
  2. LORTAB [Concomitant]
     Route: 048
  3. XANAX [Concomitant]
     Route: 048
  4. PREVACID [Concomitant]
     Route: 048
  5. ADVAIR DISKUS 100/50 [Concomitant]
     Route: 048
  6. ALBUTEROL [Concomitant]
     Route: 048
  7. VIAGRA [Concomitant]
     Route: 048
  8. TRAMADOL [Concomitant]
     Route: 048

REACTIONS (2)
  - ABDOMINAL DISCOMFORT [None]
  - NAUSEA [None]
